FAERS Safety Report 5075069-4 (Version None)
Quarter: 2006Q3

REPORT INFORMATION
  Report Type: 
  Country: None (occurrence: None)
  Receive Date: 20060803
  Receipt Date: 20060803
  Transmission Date: 20061208
  Serious: Yes (Death)
  Sender: FDA-Public Use
  Company Number: None

PATIENT
  Sex: Female
  Weight: 49.8957 kg

DRUGS (2)
  1. CYMBALTA [Suspect]
  2. WELLBUTRIN [Suspect]

REACTIONS (1)
  - COMPLETED SUICIDE [None]
